FAERS Safety Report 8416361-2 (Version None)
Quarter: 2012Q2

REPORT INFORMATION
  Report Type: 
  Country: None (occurrence: None)
  Receive Date: 20120606
  Receipt Date: 20120528
  Transmission Date: 20120825
  Serious: Yes (Other)
  Sender: FDA-Public Use
  Company Number: FR-JNJFOC-20120520327

PATIENT
  Age: 27 Year
  Sex: Female

DRUGS (1)
  1. TOPIRAMATE [Suspect]
     Indication: MIGRAINE PROPHYLAXIS
     Route: 048
     Dates: end: 20110201

REACTIONS (7)
  - AMNESIA [None]
  - PARAESTHESIA [None]
  - ABNORMAL BEHAVIOUR [None]
  - AGGRESSION [None]
  - VISUAL IMPAIRMENT [None]
  - WEIGHT DECREASED [None]
  - DIZZINESS [None]
